FAERS Safety Report 9283435 (Version 1)
Quarter: 2013Q2

REPORT INFORMATION
  Report Type: Spontaneous
  Country: US (occurrence: US)
  Receive Date: 20130510
  Receipt Date: 20130510
  Transmission Date: 20140414
  Serious: No
  Sender: FDA-Public Use
  Company Number: US-GLAXOSMITHKLINE-A1008246A

PATIENT
  Sex: Female

DRUGS (8)
  1. TYKERB [Suspect]
     Indication: PRODUCT USED FOR UNKNOWN INDICATION
     Dosage: 1000MG PER DAY
     Route: 048
     Dates: start: 20121226
  2. TAXOL [Suspect]
     Route: 065
     Dates: start: 20121226
  3. HERCEPTIN [Suspect]
     Route: 065
     Dates: start: 20121226
  4. IMODIUM [Concomitant]
     Indication: DIARRHOEA
     Dosage: 1TAB TWICE PER DAY
     Route: 048
  5. APPLE CIDER VINEGAR [Concomitant]
  6. MOUTHWASH [Concomitant]
  7. BAKING SODA [Concomitant]
  8. VASELINE [Concomitant]

REACTIONS (7)
  - Stomatitis [Not Recovered/Not Resolved]
  - Diarrhoea [Unknown]
  - Epistaxis [Unknown]
  - Rash [Recovering/Resolving]
  - Aphthous stomatitis [Recovering/Resolving]
  - Laceration [Unknown]
  - Pain [Unknown]
